FAERS Safety Report 19199661 (Version 1)
Quarter: 2021Q2

REPORT INFORMATION
  Report Type: Spontaneous
  Country: US (occurrence: US)
  Receive Date: 20210429
  Receipt Date: 20210429
  Transmission Date: 20210717
  Serious: Yes (Death)
  Sender: FDA-Public Use
  Company Number: None

PATIENT
  Age: 84 Year
  Sex: Male

DRUGS (5)
  1. DROXIDOPA [Suspect]
     Active Substance: DROXIDOPA
     Indication: ORTHOSTATIC HYPOTENSION
     Route: 048
     Dates: start: 20210309
  2. CARB/LEVO [Concomitant]
     Active Substance: CARBIDOPA\LEVODOPA
  3. FLUDROCORT [Concomitant]
  4. GABAPENTIN. [Concomitant]
     Active Substance: GABAPENTIN
  5. ELIQUIS [Concomitant]
     Active Substance: APIXABAN

REACTIONS (1)
  - Death [None]

NARRATIVE: CASE EVENT DATE: 20210422
